FAERS Safety Report 6661430-0 (Version None)
Quarter: 2010Q1

REPORT INFORMATION
  Report Type: 
  Country: None (occurrence: None)
  Receive Date: 20100331
  Receipt Date: 20100126
  Transmission Date: 20100710
  Serious: Yes (Other)
  Sender: FDA-Public Use
  Company Number: PHHY2010TW13732

PATIENT

DRUGS (1)
  1. GLEEVEC [Suspect]
     Dosage: 400

REACTIONS (6)
  - BLISTER [None]
  - DISCOMFORT [None]
  - GASTROOESOPHAGEAL REFLUX DISEASE [None]
  - MUSCLE SPASMS [None]
  - VASCULITIS [None]
  - VASODILATATION [None]
